FAERS Safety Report 4809044-9 (Version None)
Quarter: 2005Q4

REPORT INFORMATION
  Report Type: 
  Country: None (occurrence: None)
  Receive Date: 20051021
  Receipt Date: 20050217
  Transmission Date: 20060501
  Serious: Yes (Other)
  Sender: FDA-Public Use
  Company Number: GBS050216712

PATIENT
  Age: 43 Year
  Sex: Female

DRUGS (3)
  1. OLANZAPIN [Suspect]
     Route: 048
  2. HALDOL DECANOATE       (HALOPERIDOL DECANOATE) [Concomitant]
  3. CITALOPRAM [Concomitant]

REACTIONS (1)
  - DEEP VEIN THROMBOSIS [None]
